FAERS Safety Report 5672922-5 (Version None)
Quarter: 2008Q1

REPORT INFORMATION
  Report Type: 
  Country: None (occurrence: None)
  Receive Date: 20080319
  Receipt Date: 20080110
  Transmission Date: 20080703
  Serious: No
  Sender: FDA-Public Use
  Company Number: US-ASTRAZENECA-2007UW25376

PATIENT
  Age: 73 Year
  Sex: Female

DRUGS (11)
  1. SYMBICORT [Suspect]
     Indication: ASTHMA
     Dosage: 160/4.5 UG TWO PUFFS BID
     Route: 055
  2. SYMBICORT [Suspect]
     Dosage: 160/4.5 UG ONE PUFF BID
     Route: 055
  3. SYMBICORT [Suspect]
     Dosage: 160/4.5 UG TWO PUFFS BID
     Route: 055
  4. NEXIUM [Concomitant]
     Route: 048
  5. TOPROL [Concomitant]
     Route: 048
  6. SINGULAIR [Concomitant]
  7. VASOTEC [Concomitant]
  8. CELEBREX [Concomitant]
  9. CALTRATE [Concomitant]
  10. FISH OIL [Concomitant]
  11. HERBAL [Concomitant]

REACTIONS (4)
  - DRUG EFFECT DECREASED [None]
  - DYSPHONIA [None]
  - DYSPNOEA [None]
  - NERVOUSNESS [None]
